FAERS Safety Report 21699624 (Version 2)
Quarter: 2023Q1

REPORT INFORMATION
  Report Type: Report from Study
  Country: CA (occurrence: None)
  Receive Date: 20221208
  Receipt Date: 20230312
  Transmission Date: 20230418
  Serious: Yes (Hospitalization)
  Sender: FDA-Public Use
  Company Number: CA-ROCHE-3230486

PATIENT
  Age: 74 Year

DRUGS (2)
  1. VEMURAFENIB [Suspect]
     Active Substance: VEMURAFENIB
     Indication: Lymphoma
     Route: 048
     Dates: start: 20220907
  2. COBIMETINIB [Suspect]
     Active Substance: COBIMETINIB
     Indication: Lymphoma
     Dosage: 60 MG ORALLY ONCE DAILY FOR 21 DAYS, FOLLOWED BY 7 DAYS OF REST
     Route: 065
     Dates: start: 20220907

REACTIONS (1)
  - Pneumonia [Unknown]

NARRATIVE: CASE EVENT DATE: 20221026
